FAERS Safety Report 5362397-8 (Version None)
Quarter: 2007Q2

REPORT INFORMATION
  Report Type: 
  Country: None (occurrence: None)
  Receive Date: 20070530
  Receipt Date: 20070323
  Transmission Date: 20071010
  Serious: No
  Sender: FDA-Public Use
  Company Number: 2007PV032241

PATIENT
  Age: 70 Year
  Sex: Female
  Weight: 95.2554 kg

DRUGS (19)
  1. BYETTA [Suspect]
     Indication: DIABETES MELLITUS NON-INSULIN-DEPENDENT
     Dosage: 5 MCG;BID;SC ; 5 MCG;BID;SC ; 10 MCG;BID;SC ; 5 MCG;BID;SC
     Route: 058
     Dates: start: 20070126, end: 20070101
  2. BYETTA [Suspect]
     Indication: DIABETES MELLITUS NON-INSULIN-DEPENDENT
     Dosage: 5 MCG;BID;SC ; 5 MCG;BID;SC ; 10 MCG;BID;SC ; 5 MCG;BID;SC
     Route: 058
     Dates: start: 20070201, end: 20070201
  3. BYETTA [Suspect]
     Indication: DIABETES MELLITUS NON-INSULIN-DEPENDENT
     Dosage: 5 MCG;BID;SC ; 5 MCG;BID;SC ; 10 MCG;BID;SC ; 5 MCG;BID;SC
     Route: 058
     Dates: start: 20070101, end: 20070301
  4. BYETTA [Suspect]
     Indication: DIABETES MELLITUS NON-INSULIN-DEPENDENT
     Dosage: 5 MCG;BID;SC ; 5 MCG;BID;SC ; 10 MCG;BID;SC ; 5 MCG;BID;SC
     Route: 058
     Dates: start: 20070301
  5. GLUCOPHAGE XL [Concomitant]
  6. NORVASC [Concomitant]
  7. TOPROL-XL [Concomitant]
  8. DIOVAN HCT [Concomitant]
  9. SOTALAL [Concomitant]
  10. COUMADIN [Concomitant]
  11. SYNTHROID [Concomitant]
  12. ARIMIDEX [Concomitant]
  13. VITAMIN D [Concomitant]
  14. CALCIUM CHLORIDE [Concomitant]
  15. FISH OIL [Concomitant]
  16. MAGNESIUM SULFATE [Concomitant]
  17. CRESTOR [Concomitant]
  18. ZOMETA [Concomitant]
  19. ZINC [Concomitant]

REACTIONS (3)
  - BLOOD PRESSURE INCREASED [None]
  - DIARRHOEA [None]
  - NAUSEA [None]
